FAERS Safety Report 16536347 (Version 2)
Quarter: 2019Q3

REPORT INFORMATION
  Report Type: Spontaneous
  Country: CA (occurrence: CA)
  Receive Date: 20190705
  Receipt Date: 20190708
  Transmission Date: 20191004
  Serious: Yes (Death, Hospitalization, Other)
  Sender: FDA-Public Use
  Company Number: CA-PFIZER INC-2014037984

PATIENT
  Age: 76 Year
  Sex: Male
  Weight: 84.8 kg

DRUGS (26)
  1. METHOTREXATE SODIUM. [Suspect]
     Active Substance: METHOTREXATE SODIUM
     Indication: RHEUMATOID ARTHRITIS
     Dosage: UNK
     Route: 065
     Dates: start: 2006, end: 2013
  2. APO-ALPRAZOLAM [Concomitant]
     Dosage: UNK
  3. ALPRAZOLAM. [Concomitant]
     Active Substance: ALPRAZOLAM
     Dosage: UNK
  4. FLOVENT [Concomitant]
     Active Substance: FLUTICASONE PROPIONATE
     Dosage: FREQ: 2 DAY; INTERVAL:1
  5. JAMP VITAMIN D3 [Concomitant]
     Dosage: 10000 UNIT, 1 TABLET QWK
     Dates: start: 20130514
  6. RAN DOMPERIDONE [Concomitant]
     Dosage: 10 MUG, TID
     Dates: start: 20121205
  7. PANTOPRAZOLE [Concomitant]
     Active Substance: PANTOPRAZOLE
     Dosage: 40 MG, 1X/DAY 1 TABLET QD
     Dates: start: 20121205
  8. EFUDEX [Concomitant]
     Active Substance: FLUOROURACIL
     Dosage: 5 %, BID MORNING AND EVENING FOR 21 DAYS
     Route: 061
     Dates: start: 20130516
  9. APO-PREDNISONE [Concomitant]
     Active Substance: PREDNISONE
     Dosage: 5 MG, 1/2 TABLET QD MORNING AT BREAKFAST (CORTISONE)
     Dates: start: 20130514
  10. MINT AMLODIPINE [Concomitant]
     Indication: SLEEP DISORDER
     Dosage: 5 MG, 1X/DAY
     Dates: start: 20130514
  11. CHOLECALCIFEROL [Concomitant]
     Active Substance: CHOLECALCIFEROL
     Dosage: UNK
  12. FLUOROURACIL. [Concomitant]
     Active Substance: FLUOROURACIL
     Dosage: 5 PERCENT, BID
     Route: 061
  13. CORTISONE [Suspect]
     Active Substance: CORTISONE
     Dosage: UNK
     Route: 065
  14. JAMP FOLIC ACID [Concomitant]
     Dosage: 5 MG, QWK NEXT DAY FOLLOWING METHOREXATE DOSE
     Dates: start: 20130514
  15. REMICADE [Concomitant]
     Active Substance: INFLIXIMAB
     Dosage: UNK
     Route: 042
  16. AMLODIPINE BESILATE [Concomitant]
     Active Substance: AMLODIPINE BESYLATE
     Indication: SLEEP DISORDER
     Dosage: 5 MG, FREQ: 1 DAY; INTERVAL:1
  17. VITAMIN D3 [Concomitant]
     Active Substance: CHOLECALCIFEROL
     Dosage: NOT REPORTED, FREQ: 1 WEEK; INTERVAL: 1
  18. ENBREL [Suspect]
     Active Substance: ETANERCEPT
     Indication: RHEUMATOID ARTHRITIS
     Dosage: 50 MG, WEEKLY FREQ: 1 WEEK; INTERVAL: 1
     Route: 058
     Dates: start: 20090221
  19. NADOLOL. [Concomitant]
     Active Substance: NADOLOL
  20. FLOVENT [Concomitant]
     Active Substance: FLUTICASONE PROPIONATE
     Dosage: 250 MCG/DOSE, 2 INHALATIONS TWO TIMES PER DAY
     Dates: start: 20130524
  21. APO NADOL [Concomitant]
     Active Substance: NADOLOL
     Dosage: 40 MG, 1/2 TO 1 TABLET PER DAY IF NEEDED
     Dates: start: 20130416
  22. ARAVA [Concomitant]
     Active Substance: LEFLUNOMIDE
     Dosage: UNK
  23. APO ALPRAZ [Concomitant]
     Dosage: 0.5 MG, 1/2 TABLET TO 1 TABLET IF NEEDED
     Dates: start: 20130416
  24. DOMPERIDONE [Concomitant]
     Active Substance: DOMPERIDONE
     Dosage: 10 UG, FREQ: 3 DAY; INTERVAL:1
  25. FOLIC ACID. [Concomitant]
     Active Substance: FOLIC ACID
     Dosage: 5 MG, FREQ: 1 WEEK; INTERVAL:1
  26. FOLIC ACID. [Concomitant]
     Active Substance: FOLIC ACID
     Dosage: UNK

REACTIONS (3)
  - Metastases to liver [Fatal]
  - General physical health deterioration [Fatal]
  - Osteoarthritis [Fatal]

NARRATIVE: CASE EVENT DATE: 20120712
